FAERS Safety Report 15957263 (Version 1)
Quarter: 2019Q1

REPORT INFORMATION
  Report Type: Spontaneous
  Country: US (occurrence: US)
  Receive Date: 20190213
  Receipt Date: 20190213
  Transmission Date: 20190417
  Serious: Yes (Life-Threatening, Disabling, Other)
  Sender: FDA-Public Use
  Company Number: None

PATIENT
  Age: 26 Year
  Sex: Male

DRUGS (1)
  1. FOCALIN DEXMETHLPHENIDATW 10MG TA [Suspect]
     Active Substance: DEXMETHYLPHENIDATE HYDROCHLORIDE
     Indication: ATTENTION DEFICIT/HYPERACTIVITY DISORDER
     Dosage: ?          QUANTITY:56 TABLET(S);?
     Route: 048
     Dates: start: 20190209, end: 20190210

REACTIONS (13)
  - Insurance issue [None]
  - Toxicity to various agents [None]
  - Fatigue [None]
  - Product complaint [None]
  - Product substitution issue [None]
  - Arthralgia [None]
  - Suicidal ideation [None]
  - Tic [None]
  - Hyperhidrosis [None]
  - Pharyngeal oedema [None]
  - Asthenia [None]
  - Rash [None]
  - Aggression [None]

NARRATIVE: CASE EVENT DATE: 20190209
